FAERS Safety Report 19636961 (Version 1)
Quarter: 2021Q3

REPORT INFORMATION
  Report Type: Spontaneous
  Country: US (occurrence: US)
  Receive Date: 20210730
  Receipt Date: 20210730
  Transmission Date: 20211014
  Serious: Yes (Other)
  Sender: FDA-Public Use
  Company Number: US-SUN PHARMACEUTICAL INDUSTRIES LTD-2021R1-306115

PATIENT
  Sex: Female

DRUGS (4)
  1. RISPERIDONE. [Suspect]
     Active Substance: RISPERIDONE
     Indication: PROPHYLAXIS URINARY TRACT INFECTION
     Dosage: 3 MILLIGRAM, DAILY
     Route: 065
  2. MYCOPHENOLATE MOFETIL. [Suspect]
     Active Substance: MYCOPHENOLATE MOFETIL
     Indication: IMMUNOSUPPRESSION
     Dosage: 360 MILLIGRAM, BID
     Route: 048
  3. SULPHAMETHOXAZOLE/TRIMETHOPRIM [Suspect]
     Active Substance: SULFAMETHOXAZOLE\TRIMETHOPRIM
     Indication: PROPHYLAXIS URINARY TRACT INFECTION
     Dosage: UNK (80/400)
     Route: 065
  4. CYCLOSPORINE. [Concomitant]
     Active Substance: CYCLOSPORINE
     Indication: IMMUNOSUPPRESSION
     Dosage: 250 MG, UNK
     Route: 065

REACTIONS (6)
  - Hepato-lenticular degeneration [Unknown]
  - Alpha-1 antitrypsin deficiency [Recovered/Resolved]
  - Haemochromatosis [Recovered/Resolved]
  - Autoimmune hepatitis [Recovered/Resolved]
  - Hepatitis viral [Recovered/Resolved]
  - Drug-induced liver injury [Recovered/Resolved]
